FAERS Safety Report 4981776-1 (Version None)
Quarter: 2006Q2

REPORT INFORMATION
  Report Type: 
  Country: None (occurrence: None)
  Receive Date: 20060425
  Receipt Date: 20060208
  Transmission Date: 20061013
  Serious: Yes (Other)
  Sender: FDA-Public Use
  Company Number: US-GLAXOSMITHKLINE-A0592858A

PATIENT
  Age: 52 Year
  Sex: Female

DRUGS (6)
  1. VENTOLIN [Suspect]
     Indication: ASTHMA
     Route: 055
  2. ADVAIR DISKUS 100/50 [Suspect]
     Indication: ASTHMA
     Dosage: 1PUFF TWICE PER DAY
     Route: 055
     Dates: start: 20000101
  3. PREDNISONE [Suspect]
     Indication: ASTHMA
     Route: 065
     Dates: start: 20060201
  4. SINGULAIR [Concomitant]
  5. ADVAIR DISKUS 100/50 [Concomitant]
  6. THEO-24 [Concomitant]

REACTIONS (6)
  - ASTHMA [None]
  - CANDIDIASIS [None]
  - DRUG INEFFECTIVE [None]
  - DYSPHONIA [None]
  - HYPERTENSION [None]
  - POOR QUALITY DRUG ADMINISTERED [None]
